FAERS Safety Report 4269820-0 (Version None)
Quarter: 2004Q1

REPORT INFORMATION
  Report Type: 
  Country: None (occurrence: None)
  Receive Date: 20040112
  Receipt Date: 20031231
  Transmission Date: 20041129
  Serious: Yes (Hospitalization)
  Sender: FDA-Public Use
  Company Number: 163-20785-03080423 (1)

PATIENT
  Age: 53 Year
  Sex: Male

DRUGS (9)
  1. THALOMID [Suspect]
     Indication: MULTIPLE MYELOMA
     Dosage: SEE IMAGE
     Route: 048
     Dates: start: 20030724, end: 20030101
  2. THALOMID [Suspect]
     Indication: MULTIPLE MYELOMA
     Dosage: SEE IMAGE
     Route: 048
     Dates: start: 20030101
  3. ARANESP [Concomitant]
  4. ZOMETA [Concomitant]
  5. OXYCODONE HCL [Concomitant]
  6. ATIVAN [Concomitant]
  7. OSCAL WITH D (TABLETS) [Concomitant]
  8. COLACE (DOCUSATE SODIUM) [Concomitant]
  9. OXYCONTIN [Concomitant]

REACTIONS (6)
  - HAEMATOCRIT DECREASED [None]
  - HAEMOGLOBIN DECREASED [None]
  - HYPERCALCAEMIA [None]
  - MALIGNANT NEOPLASM PROGRESSION [None]
  - MULTIPLE MYELOMA [None]
  - WHITE BLOOD CELL COUNT DECREASED [None]
